FAERS Safety Report 15484469 (Version 1)
Quarter: 2018Q4

REPORT INFORMATION
  Report Type: Spontaneous
  Country: FR (occurrence: FR)
  Receive Date: 20181010
  Receipt Date: 20181010
  Transmission Date: 20190205
  Serious: Yes (Hospitalization, Other)
  Sender: FDA-Public Use
  Company Number: FR-SA-2018SA276597

PATIENT
  Age: 28 Year
  Sex: Female
  Weight: 78 kg

DRUGS (7)
  1. LANSOPRAZOLE. [Suspect]
     Active Substance: LANSOPRAZOLE
     Route: 048
     Dates: start: 20180618, end: 20180707
  2. BACTRIM [Suspect]
     Active Substance: SULFAMETHOXAZOLE\TRIMETHOPRIM
     Indication: INFECTION PROPHYLAXIS
     Route: 048
     Dates: start: 20180610, end: 20180707
  3. ISONIAZID. [Suspect]
     Active Substance: ISONIAZID
     Indication: MILIARIA
     Route: 048
     Dates: start: 20180619, end: 20180707
  4. RIMACTANE [Suspect]
     Active Substance: RIFAMPIN
     Indication: MILIARIA
     Route: 048
     Dates: start: 20180619, end: 20180707
  5. RIFADINE [Suspect]
     Active Substance: RIFAMPIN
     Indication: MILIARIA
     Route: 048
     Dates: start: 20180619, end: 20180707
  6. DEXAMBUTOL [Suspect]
     Active Substance: ETHAMBUTOL HYDROCHLORIDE
     Indication: MILIARIA
     Route: 048
     Dates: start: 20180619, end: 20180707
  7. PYRAZINAMIDE. [Suspect]
     Active Substance: PYRAZINAMIDE
     Indication: MILIARIA
     Route: 048
     Dates: start: 20180619, end: 20180707

REACTIONS (4)
  - Rash [Recovered/Resolved]
  - Hepatocellular injury [Recovered/Resolved]
  - Face oedema [Recovered/Resolved]
  - Pyrexia [Recovered/Resolved]

NARRATIVE: CASE EVENT DATE: 20180701
